FAERS Safety Report 17169932 (Version 1)
Quarter: 2019Q4

REPORT INFORMATION
  Report Type: Spontaneous
  Country: FR (occurrence: FR)
  Receive Date: 20191218
  Receipt Date: 20191218
  Transmission Date: 20200122
  Serious: Yes (Hospitalization, Other)
  Sender: FDA-Public Use
  Company Number: FR-BAUSCH-BL-2019-064936

PATIENT
  Sex: Female

DRUGS (2)
  1. MYDRIASERT [Suspect]
     Active Substance: PHENYLEPHRINE HYDROCHLORIDE\TROPICAMIDE
     Indication: PREOPERATIVE CARE
     Route: 065
  2. TETRACAINE HYDROCHLORIDE. [Suspect]
     Active Substance: TETRACAINE HYDROCHLORIDE
     Indication: CATARACT OPERATION
     Dosage: EVER
     Route: 047

REACTIONS (2)
  - Corneal oedema [Recovered/Resolved]
  - Inappropriate schedule of product administration [Unknown]
